FAERS Safety Report 22601355 (Version 1)
Quarter: 2023Q2

REPORT INFORMATION
  Report Type: Spontaneous
  Country: BR (occurrence: None)
  Receive Date: 20230614
  Receipt Date: 20230614
  Transmission Date: 20230722
  Serious: Yes (Other)
  Sender: FDA-Public Use
  Company Number: 2023A134847

PATIENT
  Sex: Female

DRUGS (9)
  1. DAPAGLIFLOZIN [Suspect]
     Active Substance: DAPAGLIFLOZIN
     Indication: Ventricular septal defect
     Dosage: A TABLET DURING FASTING
     Route: 048
     Dates: start: 20230601, end: 20230606
  2. CRESTOR [Suspect]
     Active Substance: ROSUVASTATIN CALCIUM
     Indication: Ventricular septal defect
     Route: 048
  3. LOSARTAN POTASSIUM [Concomitant]
     Active Substance: LOSARTAN POTASSIUM
  4. AMLODIPINE BESYLATE [Concomitant]
     Active Substance: AMLODIPINE BESYLATE
  5. EUTHYROX [Concomitant]
     Active Substance: LEVOTHYROXINE SODIUM
  6. VITAMIN C [Concomitant]
     Active Substance: ASCORBIC ACID
  7. CALCIUM [Concomitant]
     Active Substance: CALCIUM
  8. ZINC [Concomitant]
     Active Substance: ZINC
  9. ALOGLIPTIN BENZOATE\METFORMIN HYDROCHLORIDE [Concomitant]
     Active Substance: ALOGLIPTIN BENZOATE\METFORMIN HYDROCHLORIDE

REACTIONS (17)
  - Ventricular septal defect [Unknown]
  - Glucose tolerance impaired [Unknown]
  - Fatigue [Not Recovered/Not Resolved]
  - Illness [Unknown]
  - Dyspnoea [Unknown]
  - Chest discomfort [Unknown]
  - Dyspnoea [Unknown]
  - Cough [Unknown]
  - Drooling [Unknown]
  - Dizziness [Unknown]
  - Cold sweat [Unknown]
  - Sticky skin [Unknown]
  - Asthenia [Not Recovered/Not Resolved]
  - Dry mouth [Not Recovered/Not Resolved]
  - Hypertension [Unknown]
  - Off label use [Unknown]
  - Intentional product misuse [Unknown]

NARRATIVE: CASE EVENT DATE: 20230601
